FAERS Safety Report 22086199 (Version 3)
Quarter: 2023Q1

REPORT INFORMATION
  Report Type: Spontaneous
  Country: US (occurrence: US)
  Receive Date: 20230310
  Receipt Date: 20230317
  Transmission Date: 20230417
  Serious: No
  Sender: FDA-Public Use
  Company Number: US-SANOFI-01519933

PATIENT
  Age: 43 Year
  Sex: Female

DRUGS (1)
  1. DUPIXENT [Suspect]
     Active Substance: DUPILUMAB
     Indication: Product used for unknown indication
     Dosage: 600 MG, 1X
     Dates: start: 20230303

REACTIONS (9)
  - Injection site pain [Unknown]
  - Injection site urticaria [Recovered/Resolved]
  - Burning sensation [Unknown]
  - Condition aggravated [Unknown]
  - Pruritus [Unknown]
  - Erythema [Unknown]
  - Condition aggravated [Unknown]
  - Injection site erythema [Recovered/Resolved]
  - Accidental exposure to product [Unknown]

NARRATIVE: CASE EVENT DATE: 20230303
